FAERS Safety Report 21474373 (Version 5)
Quarter: 2023Q1

REPORT INFORMATION
  Report Type: Spontaneous
  Country: US (occurrence: US)
  Receive Date: 20221018
  Receipt Date: 20230302
  Transmission Date: 20230417
  Serious: Yes (Hospitalization, Other)
  Sender: FDA-Public Use
  Company Number: US-Blueprint Medicines Corporation-487

PATIENT
  Age: 52 Year
  Sex: Female

DRUGS (5)
  1. AYVAKIT [Suspect]
     Active Substance: AVAPRITINIB
     Indication: Systemic mastocytosis
     Route: 065
     Dates: start: 20210928
  2. AYVAKIT [Suspect]
     Active Substance: AVAPRITINIB
     Route: 065
     Dates: start: 20210928
  3. AYVAKIT [Suspect]
     Active Substance: AVAPRITINIB
     Route: 065
     Dates: start: 20210928
  4. CARVEDILOL [Suspect]
     Active Substance: CARVEDILOL
     Indication: Chest pain
     Route: 065
  5. PLAVIX [Concomitant]
     Active Substance: CLOPIDOGREL BISULFATE
     Indication: Product used for unknown indication
     Route: 065

REACTIONS (17)
  - Catheterisation cardiac abnormal [Unknown]
  - Spinal fracture [Unknown]
  - Renal injury [Unknown]
  - Renal impairment [Unknown]
  - White blood cell count increased [Unknown]
  - Haemoglobin decreased [Recovered/Resolved]
  - Haematocrit decreased [Unknown]
  - Red blood cell count decreased [Unknown]
  - Blood creatinine increased [Unknown]
  - Blood urea abnormal [Recovered/Resolved]
  - Feeling abnormal [Unknown]
  - Chest pain [Unknown]
  - Troponin increased [Unknown]
  - Product dose omission issue [Unknown]
  - Osteoporosis [Unknown]
  - Fall [Unknown]
  - Humerus fracture [Unknown]

NARRATIVE: CASE EVENT DATE: 20220901
